FAERS Safety Report 7640988-9 (Version None)
Quarter: 2011Q3

REPORT INFORMATION
  Report Type: 
  Country: None (occurrence: None)
  Receive Date: 20110728
  Receipt Date: 20110714
  Transmission Date: 20111222
  Serious: Yes (Other)
  Sender: FDA-Public Use
  Company Number: GB-RANBAXY-2011R1-46423

PATIENT
  Age: 1 Hour
  Sex: Male

DRUGS (3)
  1. CERVARIX [Suspect]
     Indication: PROPHYLAXIS
     Dosage: 1 DF, QD
     Dates: start: 20090813, end: 20090813
  2. ACYCLOVIR [Suspect]
     Indication: VARICELLA
     Dosage: UNK
     Route: 064
     Dates: start: 20110508, end: 20110515
  3. CERVARIX [Suspect]
     Dosage: 1 DF, QD
     Dates: start: 20090717, end: 20090717

REACTIONS (2)
  - MATERNAL EXPOSURE DURING PREGNANCY [None]
  - ANKYLOGLOSSIA CONGENITAL [None]
